FAERS Safety Report 6339717-0 (Version None)
Quarter: 2009Q3

REPORT INFORMATION
  Report Type: 
  Country: None (occurrence: None)
  Receive Date: 20090903
  Receipt Date: 20090824
  Transmission Date: 20100115
  Serious: Yes (Death)
  Sender: FDA-Public Use
  Company Number: NL-ELI_LILLY_AND_COMPANY-NL200908000192

PATIENT
  Age: 44 Year
  Sex: Male

DRUGS (3)
  1. ZYPREXA [Suspect]
     Dosage: 10 MG, 2/D
     Dates: start: 20080729
  2. PRIADEL [Concomitant]
     Dosage: 400 MG, UNK
     Dates: start: 20090729
  3. TEMAZEPAM [Concomitant]
     Dosage: 20 MG, UNK

REACTIONS (3)
  - COMPLETED SUICIDE [None]
  - INTENTIONAL OVERDOSE [None]
  - PANIC ATTACK [None]
